FAERS Safety Report 8494461-9 (Version None)
Quarter: 2012Q3

REPORT INFORMATION
  Report Type: 
  Country: None (occurrence: None)
  Receive Date: 20120709
  Receipt Date: 20120702
  Transmission Date: 20120928
  Serious: Yes (Death, Other)
  Sender: FDA-Public Use
  Company Number: US-BAYER-200940973NA

PATIENT
  Age: 46 Year
  Sex: Male
  Weight: 157.3 kg

DRUGS (13)
  1. NITROGLYCERIN [Concomitant]
     Dosage: UNK
     Dates: start: 20030801
  2. ANCEF [Concomitant]
     Dosage: 1 G, UNK
     Dates: start: 20030801, end: 20030801
  3. HEPARIN [Concomitant]
     Dosage: 46000 U, UNK
     Dates: start: 20030801, end: 20030801
  4. AMICAR [Concomitant]
     Dosage: 5 G, UNK
  5. PLASMA [Concomitant]
     Dosage: 2 U, UNK
     Dates: start: 20030801
  6. PLATELETS [Concomitant]
     Dosage: 1 U, UNK
     Dates: start: 20030801
  7. SUPRACAINE [Concomitant]
     Dosage: UNK
     Dates: start: 20030801, end: 20030801
  8. CARDIZEM [Concomitant]
     Dosage: UNK
     Dates: start: 20030801
  9. TRASYLOL [Suspect]
     Indication: CORONARY ARTERY BYPASS
     Dosage: TEST DOSE, 100 ML LOADING DOSE
     Route: 042
     Dates: start: 20030801
  10. VERSED [Concomitant]
     Dosage: UNK
     Dates: start: 20030801, end: 20030801
  11. FENTANYL-100 [Concomitant]
     Dosage: UNK
     Dates: start: 20030801, end: 20030801
  12. PAVULON [Concomitant]
     Dosage: UNK
     Dates: start: 20030801, end: 20030801
  13. PROTAMINE SULFATE [Concomitant]
     Dosage: 450 MG, UNK
     Dates: start: 20030801, end: 20030801

REACTIONS (12)
  - FEAR [None]
  - INJURY [None]
  - ANXIETY [None]
  - DEPRESSION [None]
  - RENAL INJURY [None]
  - ANHEDONIA [None]
  - RENAL FAILURE [None]
  - PAIN [None]
  - MULTI-ORGAN FAILURE [None]
  - DISABILITY [None]
  - DEATH [None]
  - UNEVALUABLE EVENT [None]
